FAERS Safety Report 9770389 (Version 2)
Quarter: 2013Q4

REPORT INFORMATION
  Report Type: Spontaneous
  Country: AR (occurrence: AR)
  Receive Date: 20131218
  Receipt Date: 20131218
  Transmission Date: 20140711
  Serious: Yes (Hospitalization)
  Sender: FDA-Public Use
  Company Number: AR-PFIZER INC-2013301629

PATIENT
  Age: 63 Year
  Sex: Male

DRUGS (5)
  1. RAPAMUNE [Suspect]
     Dosage: 1 MG, WEEKLY
     Dates: start: 20090901
  2. TACROLIMUS [Concomitant]
     Dosage: UNK, UNK DAILY
  3. OMEPRAZOL [Concomitant]
     Dosage: 40 MG, DAILY
  4. BACTRIM [Concomitant]
     Dosage: UNK, UNK THREE TIMES A WEEK
  5. DELTISONA [Concomitant]
     Dosage: 8 MG, DAILY

REACTIONS (3)
  - Peritonitis [Not Recovered/Not Resolved]
  - Diaphragmatic hernia [Not Recovered/Not Resolved]
  - Gastrointestinal necrosis [Not Recovered/Not Resolved]
